FAERS Safety Report 7934447-3 (Version None)
Quarter: 2011Q4

REPORT INFORMATION
  Report Type: 
  Country: None (occurrence: None)
  Receive Date: 20111122
  Receipt Date: 20111116
  Transmission Date: 20120403
  Serious: Yes (Hospitalization)
  Sender: FDA-Public Use
  Company Number: US-GLAXOSMITHKLINE-A0953996A

PATIENT
  Age: 79 Year
  Sex: Female
  Weight: 66.4 kg

DRUGS (12)
  1. METOPROLOL TARTRATE [Concomitant]
     Dosage: 12.5MG PER DAY
  2. CALCIUM [Concomitant]
  3. ZYRTEC [Concomitant]
     Dosage: 10MG AS REQUIRED
  4. TRAMADOL HYDROCHLORIDE [Concomitant]
     Dosage: 50MG AS REQUIRED
  5. LAPATINIB [Suspect]
     Indication: HEAD AND NECK CANCER
     Dosage: 1000MG PER DAY
  6. XELODA [Suspect]
     Indication: HEAD AND NECK CANCER
     Dosage: 1800MG SEE DOSAGE TEXT
     Route: 048
  7. FISH OIL [Concomitant]
  8. ALPRAZOLAM [Concomitant]
     Dosage: .25MG AT NIGHT
  9. ACETAMINOPHEN [Concomitant]
  10. LIPITOR [Concomitant]
  11. VITAMIN D [Concomitant]
  12. ZOFRAN [Concomitant]
     Dosage: 8MG AS REQUIRED

REACTIONS (3)
  - DEHYDRATION [None]
  - DIARRHOEA [None]
  - VOMITING [None]
